FAERS Safety Report 5678148-3 (Version None)
Quarter: 2008Q1

REPORT INFORMATION
  Report Type: 
  Country: None (occurrence: None)
  Receive Date: 20080319
  Receipt Date: 20080314
  Transmission Date: 20080703
  Serious: Yes (Hospitalization)
  Sender: FDA-Public Use
  Company Number: SP01839

PATIENT
  Age: 63 Year
  Sex: Male

DRUGS (2)
  1. VISICOL [Suspect]
     Indication: COMPUTERISED TOMOGRAM ABDOMEN
     Dosage: 50 MG, ORAL
     Route: 048
     Dates: start: 20080218, end: 20080218
  2. DILTIAZEM [Concomitant]

REACTIONS (5)
  - ASTHENIA [None]
  - BLOOD CALCIUM DECREASED [None]
  - HYPOKALAEMIA [None]
  - HYPOTENSION [None]
  - NAUSEA [None]
